FAERS Safety Report 13935144 (Version 1)
Quarter: 2017Q3

REPORT INFORMATION
  Report Type: Spontaneous
  Country: US (occurrence: None)
  Receive Date: 20170901
  Receipt Date: 20170901
  Transmission Date: 20171127
  Serious: No
  Sender: FDA-Public Use
  Company Number: None

PATIENT
  Age: 75 Year
  Sex: Male

DRUGS (1)
  1. EMPAGLIFLOZIN [Suspect]
     Active Substance: EMPAGLIFLOZIN
     Route: 048
     Dates: start: 20170716, end: 20170803

REACTIONS (3)
  - Blood glucose increased [None]
  - Pollakiuria [None]
  - Therapy cessation [None]

NARRATIVE: CASE EVENT DATE: 20170803
